FAERS Safety Report 11455906 (Version 2)
Quarter: 2015Q3

REPORT INFORMATION
  Report Type: Spontaneous
  Country: IN (occurrence: IN)
  Receive Date: 20150903
  Receipt Date: 20150909
  Transmission Date: 20151125
  Serious: Yes (Death)
  Sender: FDA-Public Use
  Company Number: IN-B.I. PHARMACEUTICALS,INC./RIDGEFIELD-2015-BI-47876IG

PATIENT
  Sex: Female

DRUGS (2)
  1. XOVOLTIB [Suspect]
     Active Substance: AFATINIB
     Indication: NON-SMALL CELL LUNG CANCER
     Dosage: 40 MG
     Route: 048
     Dates: start: 20150421
  2. XOVOLTIB [Suspect]
     Active Substance: AFATINIB
     Indication: GENE MUTATION
     Dosage: 20 MG
     Route: 048
     Dates: start: 20150510, end: 201507

REACTIONS (1)
  - Death [Fatal]
